FAERS Safety Report 12836302 (Version 1)
Quarter: 2016Q4

REPORT INFORMATION
  Report Type: Spontaneous
  Country: US (occurrence: US)
  Receive Date: 20161011
  Receipt Date: 20161011
  Transmission Date: 20170207
  Serious: Yes (Other)
  Sender: FDA-Public Use
  Company Number: None

PATIENT
  Age: 50 Year
  Sex: Female
  Weight: 88.35 kg

DRUGS (7)
  1. ARIPIPRAZOLE. [Concomitant]
     Active Substance: ARIPIPRAZOLE
  2. CLONAZEPAM. [Concomitant]
     Active Substance: CLONAZEPAM
  3. SIMVASTATIN. [Concomitant]
     Active Substance: SIMVASTATIN
  4. GLUCOMETER [Concomitant]
  5. TOUJEO [Suspect]
     Active Substance: INSULIN GLARGINE
     Indication: DIABETES MELLITUS
     Dosage: 450 UNITS/1.5ML 70 UNITS TWICE DAILY SUBCUTANEOUSLY
     Route: 058
     Dates: start: 20160805
  6. LOSARTAN POTASSIUM. [Concomitant]
     Active Substance: LOSARTAN POTASSIUM
  7. ONGLYZA [Concomitant]
     Active Substance: SAXAGLIPTIN HYDROCHLORIDE

REACTIONS (2)
  - Complication associated with device [None]
  - Device physical property issue [None]

NARRATIVE: CASE EVENT DATE: 20160915
